FAERS Safety Report 21886834 (Version 1)
Quarter: 2023Q1

REPORT INFORMATION
  Report Type: Spontaneous
  Country: CA (occurrence: CA)
  Receive Date: 20230119
  Receipt Date: 20230119
  Transmission Date: 20230418
  Serious: Yes (Hospitalization, Other)
  Sender: FDA-Public Use
  Company Number: CA-PFIZER INC-202300024611

PATIENT
  Age: 91 Year
  Sex: Male

DRUGS (2)
  1. LORAZEPAM [Suspect]
     Active Substance: LORAZEPAM
     Indication: Insomnia
     Dosage: UNK
     Route: 048
  2. DAYVIGO [Concomitant]
     Active Substance: LEMBOREXANT
     Dosage: UNK

REACTIONS (4)
  - Epilepsy [Unknown]
  - Generalised tonic-clonic seizure [Unknown]
  - Tonic clonic movements [Unknown]
  - Off label use [Unknown]
